FAERS Safety Report 6339228-2 (Version None)
Quarter: 2009Q3

REPORT INFORMATION
  Report Type: 
  Country: None (occurrence: None)
  Receive Date: 20090903
  Receipt Date: 20090828
  Transmission Date: 20100115
  Serious: Yes (Life-Threatening, Hospitalization)
  Sender: FDA-Public Use
  Company Number: US-GENENTECH-279572

PATIENT
  Sex: Female
  Weight: 44.1 kg

DRUGS (5)
  1. SOMATROPIN [Suspect]
     Indication: FOETAL GROWTH RETARDATION
     Dosage: 1 MG, 7/WEEK
     Route: 065
     Dates: start: 20000914
  2. CARNITOR [Concomitant]
     Indication: DRUG USE FOR UNKNOWN INDICATION
     Dosage: UNK
  3. DEPAKOTE [Concomitant]
     Indication: DRUG USE FOR UNKNOWN INDICATION
  4. PEDIAPRED [Concomitant]
     Indication: DRUG USE FOR UNKNOWN INDICATION
     Dosage: 0.4 MG, BID
  5. PULMICORT-100 [Concomitant]
     Indication: DRUG USE FOR UNKNOWN INDICATION
     Dosage: UNK

REACTIONS (4)
  - GASTRIC PERFORATION [None]
  - HIATUS HERNIA [None]
  - INTESTINAL PERFORATION [None]
  - RESPIRATORY DISTRESS [None]
